FAERS Safety Report 15793942 (Version 1)
Quarter: 2019Q1

REPORT INFORMATION
  Report Type: Spontaneous
  Country: US (occurrence: US)
  Receive Date: 20190105
  Receipt Date: 20190105
  Transmission Date: 20190417
  Serious: Yes (Life-Threatening, Disabling, Other)
  Sender: FDA-Public Use
  Company Number: None

PATIENT
  Age: 71 Year
  Sex: Female
  Weight: 55.8 kg

DRUGS (7)
  1. AMLODIPINE [Concomitant]
     Active Substance: AMLODIPINE BESYLATE
  2. CALCIUM [Concomitant]
     Active Substance: CALCIUM
  3. VITAMIN B COMPLEX [Concomitant]
     Active Substance: CYANOCOBALAMIN\DEXPANTHENOL\NIACINAMIDE\PYRIDOXINE HYDROCHLORIDE\RIBOFLAVIN 5^-PHOSPHATE SODIUM\THIAMINE HYDROCHLORIDE\VITAMIN B COMPLEX
  4. LISINOPRIL. [Concomitant]
     Active Substance: LISINOPRIL
  5. RHOPRESSA [Suspect]
     Active Substance: NETARSUDIL MESYLATE
     Indication: GLAUCOMA
     Dosage: ?          QUANTITY:1 DROP(S);?
     Route: 047
     Dates: start: 20180621, end: 20181214
  6. MAGNESIUM [Concomitant]
     Active Substance: MAGNESIUM
  7. GLUCOSAMINE+;CHONDROITIN [Concomitant]

REACTIONS (7)
  - Visual impairment [None]
  - Eye haemorrhage [None]
  - Malaise [None]
  - Ocular hyperaemia [None]
  - Impaired driving ability [None]
  - Diplopia [None]
  - Halo vision [None]

NARRATIVE: CASE EVENT DATE: 20181214
